FAERS Safety Report 18226886 (Version 1)
Quarter: 2020Q3

REPORT INFORMATION
  Report Type: Spontaneous
  Country: US (occurrence: US)
  Receive Date: 20200903
  Receipt Date: 20200903
  Transmission Date: 20201103
  Serious: No
  Sender: FDA-Public Use
  Company Number: US-SUN PHARMACEUTICAL INDUSTRIES LTD-2019R1-224510

PATIENT
  Sex: Female

DRUGS (1)
  1. DOXYCYCLINE. [Suspect]
     Active Substance: DOXYCYCLINE
     Indication: INFLAMMATION
     Dosage: 2 PILLS
     Route: 065
     Dates: start: 201906

REACTIONS (2)
  - Eye swelling [Unknown]
  - Urticaria [Unknown]

NARRATIVE: CASE EVENT DATE: 2019
